FAERS Safety Report 10534755 (Version 1)
Quarter: 2014Q4

REPORT INFORMATION
  Report Type: Spontaneous
  Country: US (occurrence: US)
  Receive Date: 20141022
  Receipt Date: 20141022
  Transmission Date: 20150529
  Serious: Yes (Hospitalization)
  Sender: FDA-Public Use
  Company Number: US-MYLANLABS-2014M1008001

PATIENT

DRUGS (4)
  1. EPINEPHRINE. [Suspect]
     Active Substance: EPINEPHRINE
     Dosage: 1:2000
     Route: 050
  2. INSULIN [Concomitant]
     Active Substance: INSULIN NOS
     Route: 065
  3. LISINOPRIL. [Concomitant]
     Active Substance: LISINOPRIL
     Route: 065
  4. BUPIVACAINE [Concomitant]
     Active Substance: BUPIVACAINE
     Dosage: 15 ML OF 0.5%
     Route: 065

REACTIONS (10)
  - Metabolic acidosis [Recovering/Resolving]
  - Respiratory distress [Recovering/Resolving]
  - Blood pressure increased [Recovering/Resolving]
  - Cardiomyopathy [Recovered/Resolved]
  - Productive cough [Recovering/Resolving]
  - Wrong technique in drug usage process [Recovering/Resolving]
  - Supraventricular tachycardia [Recovered/Resolved]
  - Haemoptysis [Recovering/Resolving]
  - Left ventricular dysfunction [Recovered/Resolved]
  - Overdose [Recovering/Resolving]
